FAERS Safety Report 9344012 (Version 3)
Quarter: 2014Q3

REPORT INFORMATION
  Report Type: Spontaneous
  Country: US (occurrence: US)
  Receive Date: 20130612
  Receipt Date: 20140818
  Transmission Date: 20150326
  Serious: Yes (Death, Hospitalization, Other)
  Sender: FDA-Public Use
  Company Number: US-009507513-1306USA003428

PATIENT
  Sex: Female
  Weight: 80.27 kg

DRUGS (1)
  1. NUVARING [Suspect]
     Active Substance: ETHINYL ESTRADIOL\ETONOGESTREL
     Indication: CONTRACEPTION
     Dosage: UNK
     Route: 067
     Dates: start: 20100428, end: 20101124

REACTIONS (3)
  - Brain oedema [Unknown]
  - Pulmonary embolism [Fatal]
  - Influenza like illness [Recovering/Resolving]

NARRATIVE: CASE EVENT DATE: 20101121
